FAERS Safety Report 10355125 (Version 1)
Quarter: 2014Q3

REPORT INFORMATION
  Report Type: Spontaneous
  Country: US (occurrence: None)
  Receive Date: 20140730
  Receipt Date: 20140730
  Transmission Date: 20150326
  Serious: Yes (Death)
  Sender: FDA-Public Use
  Company Number: None

PATIENT
  Age: 74 Year
  Sex: Male

DRUGS (5)
  1. ATORVASTATIN-UNKNOWN? [Concomitant]
  2. METOPROLOL-UNKNOWN [Concomitant]
  3. IMBRUVICA [Suspect]
     Active Substance: IBRUTINIB
     Indication: CHRONIC LYMPHOCYTIC LEUKAEMIA
     Route: 048
     Dates: start: 20140412
  4. ASPIRIN-UNKNOWN [Concomitant]
  5. MULTIVITAMINS-UNKNOWN [Concomitant]

REACTIONS (1)
  - Death [None]
